FAERS Safety Report 5321656-5 (Version None)
Quarter: 2007Q1

REPORT INFORMATION
  Report Type: 
  Country: None (occurrence: None)
  Receive Date: 20070220
  Receipt Date: 20061219
  Transmission Date: 20070707
  Serious: No
  Sender: FDA-Public Use
  Company Number: TPA2006A02003

PATIENT
  Age: 41 Year
  Sex: Female
  Weight: 52.1637 kg

DRUGS (3)
  1. ROZEREM [Suspect]
     Indication: INSOMNIA
     Dosage: 8 MG, QHS, PER ORAL
     Route: 048
     Dates: start: 20061105
  2. WELLBUTRIN [Concomitant]
  3. AMBIEN [Concomitant]

REACTIONS (4)
  - DRUG INEFFECTIVE [None]
  - INSOMNIA [None]
  - PARADOXICAL DRUG REACTION [None]
  - POOR QUALITY SLEEP [None]
